FAERS Safety Report 7294279-9 (Version None)
Quarter: 2011Q1

REPORT INFORMATION
  Report Type: 
  Country: None (occurrence: None)
  Receive Date: 20110215
  Receipt Date: 20110125
  Transmission Date: 20110831
  Serious: Yes (Hospitalization)
  Sender: FDA-Public Use
  Company Number: US-GILEAD-2010-0033226

PATIENT
  Sex: Female

DRUGS (18)
  1. HYDROCHLOROTHIAZIDE [Concomitant]
     Indication: CARDIAC FAILURE CONGESTIVE
  2. TRICOR [Concomitant]
     Indication: CORONARY ARTERY DISEASE
  3. EXFORGE [Concomitant]
  4. RENAGEL [Concomitant]
  5. REVATIO [Concomitant]
     Indication: PULMONARY HYPERTENSION
  6. GABAPENTIN [Concomitant]
  7. COUMADIN [Concomitant]
     Indication: CORONARY ARTERY DISEASE
  8. LANTUS [Concomitant]
  9. AMBIEN [Concomitant]
  10. PROCRIT [Concomitant]
  11. ASPIRIN [Concomitant]
     Indication: CORONARY ARTERY DISEASE
  12. CALCITRIOL [Concomitant]
  13. FERROUS SULFATE TAB [Concomitant]
     Indication: ANAEMIA
  14. HYDRALAZINE [Concomitant]
     Indication: CARDIAC FAILURE CONGESTIVE
  15. OMEPRAZOLE [Concomitant]
  16. LETAIRIS [Suspect]
     Indication: PULMONARY ARTERIAL HYPERTENSION
     Route: 048
     Dates: start: 20101020
  17. BUMEX [Concomitant]
     Indication: CARDIAC FAILURE CONGESTIVE
  18. CATAPRESS PATCH [Concomitant]

REACTIONS (3)
  - FATIGUE [None]
  - DYSPNOEA [None]
  - ASTHENIA [None]
